FAERS Safety Report 6068209-1 (Version None)
Quarter: 2009Q1

REPORT INFORMATION
  Report Type: 
  Country: None (occurrence: None)
  Receive Date: 20090206
  Receipt Date: 20081220
  Transmission Date: 20090719
  Serious: Yes (Other)
  Sender: FDA-Public Use
  Company Number: BR-BAYER-200910722LA

PATIENT
  Sex: Male

DRUGS (1)
  1. ADALAT [Suspect]
     Indication: HYPERTENSION
     Route: 048

REACTIONS (1)
  - BLOOD PRESSURE INCREASED [None]
